FAERS Safety Report 9343944 (Version 2)
Quarter: 2013Q3

REPORT INFORMATION
  Report Type: Report from Study
  Country: US (occurrence: US)
  Receive Date: 20130612
  Receipt Date: 20130708
  Transmission Date: 20140515
  Serious: Yes (Other)
  Sender: FDA-Public Use
  Company Number: US-MYLANLABS-2013S1012048

PATIENT
  Age: 25 Year
  Sex: Female

DRUGS (3)
  1. AMNESTEEM CAPSULES [Suspect]
     Dates: start: 20130319, end: 20130527
  2. TOPAMAX [Suspect]
     Dates: start: 2013
  3. NUVARING [Concomitant]

REACTIONS (3)
  - Exposure during pregnancy [Recovered/Resolved]
  - Vaginal haemorrhage [Not Recovered/Not Resolved]
  - Abortion induced [Recovered/Resolved]
